FAERS Safety Report 15027552 (Version 1)
Quarter: 2018Q2

REPORT INFORMATION
  Report Type: Spontaneous
  Country: US (occurrence: US)
  Receive Date: 20180619
  Receipt Date: 20180619
  Transmission Date: 20180711
  Serious: Yes (Hospitalization, Other)
  Sender: FDA-Public Use
  Company Number: US-009507513-1806USA006120

PATIENT
  Sex: Male

DRUGS (1)
  1. KEYTRUDA [Suspect]
     Active Substance: PEMBROLIZUMAB
     Indication: METASTATIC MALIGNANT MELANOMA
     Dosage: 200 MG, Q3W
     Route: 042
     Dates: start: 20170425

REACTIONS (12)
  - Myalgia [Unknown]
  - Diarrhoea [Unknown]
  - Laboratory test abnormal [Unknown]
  - Nausea [Unknown]
  - Arthralgia [Unknown]
  - Drug dose omission [Unknown]
  - Hypoaesthesia [Unknown]
  - Cellulitis staphylococcal [Unknown]
  - Cellulitis [Unknown]
  - Weight decreased [Unknown]
  - Muscle spasms [Unknown]
  - Retching [Unknown]
